FAERS Safety Report 7296244-4 (Version None)
Quarter: 2011Q1

REPORT INFORMATION
  Report Type: 
  Country: None (occurrence: None)
  Receive Date: 20110216
  Receipt Date: 20110208
  Transmission Date: 20110831
  Serious: No
  Sender: FDA-Public Use
  Company Number: US-TEVA-265483USA

PATIENT
  Age: 54 Year
  Sex: Female

DRUGS (2)
  1. ALBUTEROL SULFATE AUTOHALER [Suspect]
     Indication: ASTHMA
     Dosage: 2 INHALATION TWICE DAILY
     Route: 055
     Dates: start: 20110129
  2. BECLOMETASONE DIPROPIONATE [Concomitant]

REACTIONS (1)
  - DYSPHONIA [None]
